FAERS Safety Report 25838635 (Version 1)
Quarter: 2025Q3

REPORT INFORMATION
  Report Type: Spontaneous
  Country: US (occurrence: US)
  Receive Date: 20250924
  Receipt Date: 20250924
  Transmission Date: 20251021
  Serious: Yes (Hospitalization, Other)
  Sender: JUBILANT
  Company Number: US-JUBILANT CADISTA PHARMACEUTICALS-2023JUB00145

PATIENT
  Age: 7 Decade
  Sex: Male

DRUGS (5)
  1. LEVOFLOXACIN [Suspect]
     Active Substance: LEVOFLOXACIN
     Indication: Cough
     Route: 065
  2. PREDNISONE [Suspect]
     Active Substance: PREDNISONE
     Indication: Cough
     Route: 048
  3. PREDNISONE [Suspect]
     Active Substance: PREDNISONE
     Route: 048
  4. DIETARY SUPPLEMENT\PROBIOTICS [Suspect]
     Active Substance: DIETARY SUPPLEMENT\PROBIOTICS NOS
     Indication: Colitis ulcerative
     Dosage: 550 MG, ONCE PER DAY
     Route: 065
  5. BALSALAZIDE [Concomitant]
     Active Substance: BALSALAZIDE
     Indication: Colitis ulcerative
     Dosage: 750 MG, 2 TIMES PER DAY
     Route: 065

REACTIONS (7)
  - Septic shock [Recovered/Resolved]
  - Bacterial translocation [Recovered/Resolved]
  - Prosthetic valve endocarditis [Recovered/Resolved]
  - Gastrointestinal bacterial infection [Recovered/Resolved]
  - Septic cerebral embolism [Recovered/Resolved]
  - Lactobacillus bacteraemia [Recovered/Resolved]
  - Subacute endocarditis [Recovered/Resolved]
